FAERS Safety Report 5273181-8 (Version None)
Quarter: 2007Q1

REPORT INFORMATION
  Report Type: 
  Country: None (occurrence: None)
  Receive Date: 20070322
  Receipt Date: 20070312
  Transmission Date: 20070707
  Serious: Yes (Hospitalization, Other)
  Sender: FDA-Public Use
  Company Number: FR-ABBOTT-07P-056-0359524-00

PATIENT
  Sex: Male

DRUGS (4)
  1. MONONAXY [Suspect]
     Indication: BRONCHITIS
     Route: 048
     Dates: start: 20061227, end: 20061229
  2. CARBAMAZEPINE [Interacting]
     Indication: EPILEPSY
     Route: 048
     Dates: start: 20010101
  3. TOPIRAMATE [Concomitant]
     Indication: DRUG USE FOR UNKNOWN INDICATION
     Dates: start: 20040101
  4. BETAMETHASONE [Concomitant]
     Indication: DRUG USE FOR UNKNOWN INDICATION
     Dates: start: 20061227, end: 20061229

REACTIONS (9)
  - APHASIA [None]
  - ATYPICAL BENIGN PARTIAL EPILEPSY [None]
  - DRUG INTERACTION [None]
  - DRUG LEVEL INCREASED [None]
  - FALL [None]
  - GAIT DISTURBANCE [None]
  - MALAISE [None]
  - SENSATION OF HEAVINESS [None]
  - SPEECH DISORDER [None]
